FAERS Safety Report 8602830-9 (Version None)
Quarter: 2012Q3

REPORT INFORMATION
  Report Type: 
  Country: None (occurrence: None)
  Receive Date: 20120817
  Receipt Date: 20120810
  Transmission Date: 20120928
  Serious: Yes (Hospitalization)
  Sender: FDA-Public Use
  Company Number: US-GLAXOSMITHKLINE-A0919679A

PATIENT
  Sex: Male

DRUGS (3)
  1. FLUTICASONE PROPIONATE [Suspect]
     Indication: PRODUCT USED FOR UNKNOWN INDICATION
     Route: 055
     Dates: start: 20090724
  2. VENTOLIN HFA [Suspect]
     Indication: PRODUCT USED FOR UNKNOWN INDICATION
     Route: 055
     Dates: start: 20090724
  3. ALTABAX [Suspect]
     Indication: PRODUCT USED FOR UNKNOWN INDICATION
     Route: 061
     Dates: start: 20090724

REACTIONS (5)
  - PULMONARY ARTERIAL HYPERTENSION [None]
  - VISUAL IMPAIRMENT [None]
  - SURGERY [None]
  - CATHETER PLACEMENT [None]
  - MALAISE [None]
